FAERS Safety Report 10573259 (Version 1)
Quarter: 2014Q4

REPORT INFORMATION
  Report Type: Spontaneous
  Country: US (occurrence: None)
  Receive Date: 20141030
  Receipt Date: 20141030
  Transmission Date: 20150529
  Serious: Yes (Other)
  Sender: FDA-Public Use
  Company Number: PHEH2014US009557

PATIENT
  Age: 65 Year
  Sex: Female
  Weight: 59 kg

DRUGS (9)
  1. AMLODIPINE BENAZEPRIL (AMLODIPINE BESILATE, BENAZEPRIL HYSROCHLORIDE)? [Concomitant]
  2. CALCIUM (CALCIUM) [Concomitant]
     Active Substance: CALCIUM
  3. CLONAZEPAM (CLONAZEPAM) [Concomitant]
  4. MULTIVIT (VITAMINS NOS) [Concomitant]
  5. BIOTIN (BIOTIN) [Concomitant]
  6. AMLODIPINE [Concomitant]
     Active Substance: AMLODIPINE BESYLATE
  7. CALCIUM CITRATE WITH VITMAIN D3 (CALCIUM CITRATE, COLECALCIFEROL)?? [Concomitant]
  8. MVI (VITAMINS NOS) [Concomitant]
  9. RECLAST [Suspect]
     Active Substance: ZOLEDRONIC ACID
     Route: 042
     Dates: start: 20140409

REACTIONS (11)
  - Eye inflammation [None]
  - Visual acuity reduced [None]
  - Eye pain [None]
  - Dyspnoea [None]
  - Somnolence [None]
  - Vision blurred [None]
  - Iritis [None]
  - Respiratory distress [None]
  - Panic attack [None]
  - Palpitations [None]
  - Ocular hyperaemia [None]

NARRATIVE: CASE EVENT DATE: 20140412
